FAERS Safety Report 19459053 (Version 1)
Quarter: 2021Q2

REPORT INFORMATION
  Report Type: Spontaneous
  Country: US (occurrence: US)
  Receive Date: 20210624
  Receipt Date: 20210624
  Transmission Date: 20210717
  Serious: No
  Sender: FDA-Public Use
  Company Number: US-SA-2021SA206971

PATIENT
  Sex: Male

DRUGS (1)
  1. DUPIXENT [Suspect]
     Active Substance: DUPILUMAB

REACTIONS (3)
  - Pyrexia [Not Recovered/Not Resolved]
  - Illness [Not Recovered/Not Resolved]
  - Vomiting [Not Recovered/Not Resolved]
